FAERS Safety Report 7758426-4 (Version None)
Quarter: 2011Q3

REPORT INFORMATION
  Report Type: 
  Country: None (occurrence: None)
  Receive Date: 20110919
  Receipt Date: 20110909
  Transmission Date: 20111222
  Serious: Yes (Hospitalization)
  Sender: FDA-Public Use
  Company Number: AU-GENZYME-THYM-1002758

PATIENT
  Sex: Male
  Weight: 55 kg

DRUGS (19)
  1. POSACONAZOLE [Concomitant]
     Indication: ANTIFUNGAL PROPHYLAXIS
     Dosage: 200 MG, TID
     Dates: start: 20100521
  2. FILGRASTIM [Concomitant]
     Indication: PANCYTOPENIA
     Dosage: 300 MCG, UNK
     Route: 058
     Dates: start: 20100707, end: 20100707
  3. CYCLOSPORINE [Concomitant]
     Indication: PROPHYLAXIS AGAINST GRAFT VERSUS HOST DISEASE
     Dosage: 165 MG, BID
     Route: 048
     Dates: start: 20100514, end: 20100520
  4. CYCLIZINE [Concomitant]
     Indication: PROPHYLAXIS
     Dosage: 50 MG, TID
     Route: 048
     Dates: start: 20100401
  5. BACTRIM [Concomitant]
     Indication: PROPHYLAXIS
     Dosage: UNK
     Route: 048
     Dates: start: 20100601
  6. VALACICLOVIR [Concomitant]
     Indication: ANTIVIRAL PROPHYLAXIS
     Dosage: 1 G, BID
     Route: 048
     Dates: start: 20100521
  7. CYCLOSPORINE [Concomitant]
     Dosage: 50 MG, BID
     Route: 048
     Dates: start: 20100709
  8. PREDNISOLONE [Concomitant]
     Indication: PROPHYLAXIS AGAINST GRAFT VERSUS HOST DISEASE
     Dosage: 15 MG, QD
     Route: 048
     Dates: start: 20100602, end: 20100608
  9. THYMOGLOBULIN [Suspect]
     Dosage: 2 MG/KG, QD
     Route: 042
     Dates: start: 20100419, end: 20100420
  10. DOMPERIDONE [Concomitant]
     Indication: PROPHYLAXIS
     Dosage: 10 MG, TID
     Route: 048
     Dates: start: 20100401
  11. THYMOGLOBULIN [Suspect]
     Indication: BONE MARROW CONDITIONING REGIMEN
     Dosage: .5 MG/KG, UNK
     Route: 042
     Dates: start: 20100418, end: 20100418
  12. FILGRASTIM [Concomitant]
     Dosage: 300 MCG, UNK
     Route: 058
     Dates: start: 20100709, end: 20100709
  13. CYCLOSPORINE [Concomitant]
     Dosage: 150 MG, BID
     Route: 048
     Dates: start: 20100520
  14. PREDNISOLONE [Concomitant]
     Dosage: 5 MG, QD
     Route: 048
     Dates: start: 20100608, end: 20100609
  15. ACYCLOVIR [Concomitant]
     Indication: ANTIVIRAL PROPHYLAXIS
     Dosage: 200 MG, TID
     Route: 048
     Dates: start: 20100709
  16. PREDNISOLONE [Concomitant]
     Dosage: 10 MG, QD
     Route: 048
     Dates: start: 20100709
  17. ETOPOSIDE [Concomitant]
     Indication: BONE MARROW CONDITIONING REGIMEN
     Dosage: UNK
  18. FILGRASTIM [Concomitant]
     Dosage: 300 MCG, QD
     Dates: start: 20100712, end: 20100714
  19. PANTOPRAZOLE [Concomitant]
     Indication: PROPHYLAXIS
     Dosage: 40 MEQ/L, BID
     Route: 048
     Dates: start: 20100101

REACTIONS (4)
  - HAEMORRHAGE [None]
  - DISEASE RECURRENCE [None]
  - PYREXIA [None]
  - CYTOMEGALOVIRUS INFECTION [None]
